FAERS Safety Report 10195027 (Version 3)
Quarter: 2014Q2

REPORT INFORMATION
  Report Type: Report from Study
  Country: BR (occurrence: BR)
  Receive Date: 20140526
  Receipt Date: 20140619
  Transmission Date: 20141212
  Serious: Yes (Other)
  Sender: FDA-Public Use
  Company Number: PHHY2013BR143179

PATIENT
  Age: 49 Year
  Sex: Female
  Weight: 60 kg

DRUGS (11)
  1. SANDOSTATIN LAR [Suspect]
     Indication: ACROMEGALY
     Dosage: 10 MG,(1 AMPOULE),EVERY 28 DAYS
     Dates: start: 200703
  2. SANDOSTATIN LAR [Suspect]
     Dosage: 20 MG, (1 AMPOULE EVERY 28 DAYS)
     Dates: start: 200705
  3. SANDOSTATIN LAR [Suspect]
     Dosage: 20 MG, (3 AMPOULES EVERY 15 DAYS)
  4. SANDOSTATIN LAR [Suspect]
     Dosage: 20 MG, A MONTH (2 AMPOULES EVERY 15 DAYS AND 1 AMPOULE EVERY 15 DAYS)
  5. DOSTINEX [Concomitant]
     Dosage: UNK UKN, UNK
     Dates: start: 2007
  6. CARBAMAZEPINE [Concomitant]
     Dosage: 6 DF, UNK
  7. CARBAMAZEPINE [Concomitant]
     Dosage: UNK UKN, UNK
  8. AMITRIPTYLIN [Concomitant]
     Dosage: UNK UKN, UNK
  9. FLUOXETINE [Concomitant]
     Dosage: UNK UKN, UNK
  10. ENALAPRIL [Concomitant]
     Dosage: UNK UKN, UNK
  11. SIMVASTATIN [Concomitant]
     Dosage: UNK UKN, UNK

REACTIONS (7)
  - Chronic obstructive pulmonary disease [Not Recovered/Not Resolved]
  - Wheezing [Not Recovered/Not Resolved]
  - Catarrh [Not Recovered/Not Resolved]
  - Convulsion [Not Recovered/Not Resolved]
  - Hypertension [Not Recovered/Not Resolved]
  - Memory impairment [Not Recovered/Not Resolved]
  - Respiratory tract infection [Recovered/Resolved]
